FAERS Safety Report 6751881-8 (Version None)
Quarter: 2010Q2

REPORT INFORMATION
  Report Type: 
  Country: None (occurrence: None)
  Receive Date: 20100526
  Receipt Date: 20100405
  Transmission Date: 20101027
  Serious: No
  Sender: FDA-Public Use
  Company Number: 306736

PATIENT
  Age: 58 Year
  Sex: Female

DRUGS (3)
  1. VICTOZA [Suspect]
     Indication: TYPE 2 DIABETES MELLITUS
     Dosage: SUBCUTANEIOUS
     Route: 058
  2. AMLODIPINE [Concomitant]
  3. MICARDIS [Concomitant]

REACTIONS (1)
  - INJECTION SITE HAEMORRHAGE [None]
